FAERS Safety Report 21907541 (Version 2)
Quarter: 2023Q1

REPORT INFORMATION
  Report Type: Report from Study
  Country: IN (occurrence: IN)
  Receive Date: 20230125
  Receipt Date: 20230209
  Transmission Date: 20230417
  Serious: No
  Sender: FDA-Public Use
  Company Number: IN-ASTELLAS-2022US030489

PATIENT
  Age: 22 Year
  Sex: Female

DRUGS (4)
  1. ISAVUCONAZOLE [Suspect]
     Active Substance: ISAVUCONAZOLE
     Indication: Aspergillus infection
     Route: 048
     Dates: start: 20220718, end: 20220719
  2. ISAVUCONAZOLE [Suspect]
     Active Substance: ISAVUCONAZOLE
     Indication: Mucormycosis
     Route: 048
     Dates: start: 20220720
  3. ISAVUCONAZOLE [Suspect]
     Active Substance: ISAVUCONAZOLE
     Dosage: 200 MG, TWICE DAILY (1-0-0 X 2)
     Route: 048
     Dates: start: 202212
  4. ISAVUCONAZOLE [Suspect]
     Active Substance: ISAVUCONAZOLE
     Route: 048

REACTIONS (4)
  - Weight decreased [Unknown]
  - Off label use [Unknown]
  - Off label use [Unknown]
  - Inability to afford medication [Unknown]

NARRATIVE: CASE EVENT DATE: 20220718
